FAERS Safety Report 6190633-7 (Version None)
Quarter: 2009Q2

REPORT INFORMATION
  Report Type: 
  Country: None (occurrence: None)
  Receive Date: 20090514
  Receipt Date: 20090414
  Transmission Date: 20091009
  Serious: No
  Sender: FDA-Public Use
  Company Number: US-BRISTOL-MYERS SQUIBB COMPANY-14586697

PATIENT
  Age: 59 Year
  Sex: Female
  Weight: 57 kg

DRUGS (8)
  1. IXEMPRA KIT [Suspect]
     Indication: BREAST CANCER METASTATIC
     Dosage: ADMINISTERED 3 WEEKS, THEN 1 WEEK OFF.
     Route: 042
     Dates: start: 20080301, end: 20080801
  2. AVASTIN [Concomitant]
  3. XANAX [Concomitant]
  4. MULTI-VITAMIN [Concomitant]
  5. CALCIUM [Concomitant]
  6. CITRUCEL [Concomitant]
  7. BENADRYL [Concomitant]
     Indication: PREMEDICATION
     Route: 042
  8. ATIVAN [Concomitant]
     Indication: PREMEDICATION
     Dosage: MINIMAL DOSE
     Route: 042

REACTIONS (3)
  - HYPOAESTHESIA [None]
  - PRURITUS [None]
  - SENSORY LOSS [None]
